FAERS Safety Report 13485691 (Version 1)
Quarter: 2017Q2

REPORT INFORMATION
  Report Type: Spontaneous
  Country: FR (occurrence: FR)
  Receive Date: 20170426
  Receipt Date: 20170426
  Transmission Date: 20170830
  Serious: Yes (Hospitalization)
  Sender: FDA-Public Use
  Company Number: FR-PFIZER INC-2017175861

PATIENT
  Age: 8 Month
  Sex: Male
  Weight: 9.5 kg

DRUGS (1)
  1. ADVILMED ENFANTS ET NOURRISSONS [Suspect]
     Active Substance: IBUPROFEN
     Indication: TEETHING
     Dosage: 1 DF, AS NEEDED
     Route: 048
     Dates: start: 20170317, end: 20170318

REACTIONS (3)
  - Infection [Recovered/Resolved]
  - Arthritis bacterial [Recovered/Resolved]
  - Condition aggravated [Recovered/Resolved]

NARRATIVE: CASE EVENT DATE: 20170322
